FAERS Safety Report 11549832 (Version 1)
Quarter: 2015Q3

REPORT INFORMATION
  Report Type: Spontaneous
  Country: US (occurrence: US)
  Receive Date: 20150924
  Receipt Date: 20150924
  Transmission Date: 20151125
  Serious: No
  Sender: FDA-Public Use
  Company Number: US-INCYTE CORPORATION-2015IN003493

PATIENT
  Sex: Female

DRUGS (19)
  1. VITAMIN D                          /00107901/ [Concomitant]
     Active Substance: ERGOCALCIFEROL
  2. FOLIC ACID. [Concomitant]
     Active Substance: FOLIC ACID
  3. LOSARTAN. [Concomitant]
     Active Substance: LOSARTAN
  4. LISINOPRIL. [Concomitant]
     Active Substance: LISINOPRIL
  5. METFORMIN [Concomitant]
     Active Substance: METFORMIN HYDROCHLORIDE
  6. LEVOTHYROXINE. [Concomitant]
     Active Substance: LEVOTHYROXINE
  7. LANTUS [Concomitant]
     Active Substance: INSULIN GLARGINE
  8. PROBIOTIC                          /06395501/ [Concomitant]
     Active Substance: BIFIDOBACTERIUM ANIMALIS SUBSP. LACTIS
  9. MUCINEX [Concomitant]
     Active Substance: GUAIFENESIN
  10. AMLODIPINE [Concomitant]
     Active Substance: AMLODIPINE BESYLATE
  11. VITAMIN E [Concomitant]
     Active Substance: .ALPHA.-TOCOPHEROL
  12. VITAMIN B12 [Concomitant]
     Active Substance: CYANOCOBALAMIN
  13. ASPIRIN. [Concomitant]
     Active Substance: ASPIRIN
     Dosage: UNK
  14. ATORVASTATIN [Concomitant]
     Active Substance: ATORVASTATIN
  15. PANTOPRAZOLE [Concomitant]
     Active Substance: PANTOPRAZOLE SODIUM
  16. GLIMEPIRIDE. [Concomitant]
     Active Substance: GLIMEPIRIDE
  17. CLOPIDOGREL [Concomitant]
     Active Substance: CLOPIDOGREL BISULFATE
  18. JAKAFI [Suspect]
     Active Substance: RUXOLITINIB
     Indication: MYELOFIBROSIS
     Dosage: 10 MG, BID
     Route: 048
  19. METOPROLOL [Concomitant]
     Active Substance: METOPROLOL

REACTIONS (5)
  - Peripheral swelling [Unknown]
  - Erythema [Unknown]
  - Pain in extremity [Unknown]
  - Haemoglobin decreased [Unknown]
  - Splenomegaly [Unknown]
